FAERS Safety Report 26049806 (Version 1)
Quarter: 2025Q4

REPORT INFORMATION
  Report Type: Spontaneous
  Country: US (occurrence: US)
  Receive Date: 20251115
  Receipt Date: 20251115
  Transmission Date: 20260117
  Serious: No
  Sender: MERCK SHARP & DOHME LLC
  Company Number: US-009507513-2345122

PATIENT
  Age: 73 Year
  Sex: Female

DRUGS (3)
  1. BELSOMRA [Suspect]
     Active Substance: SUVOREXANT
     Indication: Insomnia
     Dosage: 5 MG, BEFORE BED
     Route: 048
     Dates: start: 20251023, end: 20251023
  2. SEROQUEL [Concomitant]
     Active Substance: QUETIAPINE FUMARATE
     Indication: Insomnia
  3. AMBIEN [Concomitant]
     Active Substance: ZOLPIDEM TARTRATE
     Indication: Insomnia

REACTIONS (3)
  - Drug ineffective [Unknown]
  - Agitation [Unknown]
  - Anxiety [Unknown]

NARRATIVE: CASE EVENT DATE: 20251023
